FAERS Safety Report 15596181 (Version 1)
Quarter: 2018Q4

REPORT INFORMATION
  Report Type: Spontaneous
  Country: IT (occurrence: IT)
  Receive Date: 20181108
  Receipt Date: 20181108
  Transmission Date: 20190205
  Serious: Yes (Other)
  Sender: FDA-Public Use
  Company Number: IT-PFIZER INC-2018455415

PATIENT
  Age: 54 Year
  Sex: Male

DRUGS (2)
  1. LIXIDOL [Suspect]
     Active Substance: KETOROLAC TROMETHAMINE
     Indication: PAIN
     Dosage: 1 DF, TOTAL
     Route: 042
     Dates: start: 20180904, end: 20180904
  2. FENTANEST [Suspect]
     Active Substance: FENTANYL CITRATE
     Indication: PAIN
     Dosage: 1 DF, TOTAL
     Route: 042
     Dates: start: 20180904, end: 20180904

REACTIONS (4)
  - Pruritus [Unknown]
  - Laryngeal discomfort [Unknown]
  - Paraesthesia [Unknown]
  - Drug hypersensitivity [Unknown]

NARRATIVE: CASE EVENT DATE: 20180904
